FAERS Safety Report 5778483-4 (Version None)
Quarter: 2008Q2

REPORT INFORMATION
  Report Type: 
  Country: None (occurrence: None)
  Receive Date: 20080617
  Receipt Date: 20080606
  Transmission Date: 20081010
  Serious: Yes (Hospitalization, Other)
  Sender: FDA-Public Use
  Company Number: 2008SP011240

PATIENT
  Sex: Female

DRUGS (1)
  1. CORICIDIN COUGH + COLD (2 MG) [Suspect]
     Indication: DRUG USE FOR UNKNOWN INDICATION
     Dosage: 8 DF; PO
     Route: 048

REACTIONS (1)
  - OVERDOSE [None]
